FAERS Safety Report 18658778 (Version 2)
Quarter: 2021Q2

REPORT INFORMATION
  Report Type: Spontaneous
  Country: US (occurrence: US)
  Receive Date: 20201224
  Receipt Date: 20210510
  Transmission Date: 20210717
  Serious: Yes (Other)
  Sender: FDA-Public Use
  Company Number: US-JNJFOC-20201231477

PATIENT
  Age: 61 Year
  Sex: Female

DRUGS (10)
  1. STELARA [Suspect]
     Active Substance: USTEKINUMAB
     Indication: PRODUCT USED FOR UNKNOWN INDICATION
     Route: 058
  2. PREDNISONE. [Concomitant]
     Active Substance: PREDNISONE
     Indication: PRODUCT USED FOR UNKNOWN INDICATION
     Route: 065
  3. TRAMADOL. [Concomitant]
     Active Substance: TRAMADOL
     Route: 065
  4. HUMIRA [Suspect]
     Active Substance: ADALIMUMAB
     Route: 058
     Dates: start: 20201125, end: 20201125
  5. DICLOFENAC [Suspect]
     Active Substance: DICLOFENAC
     Indication: PRODUCT USED FOR UNKNOWN INDICATION
     Route: 058
  6. HUMIRA [Suspect]
     Active Substance: ADALIMUMAB
     Route: 058
     Dates: start: 2020, end: 202001
  7. HUMIRA [Suspect]
     Active Substance: ADALIMUMAB
     Route: 058
     Dates: end: 202001
  8. HUMIRA [Suspect]
     Active Substance: ADALIMUMAB
     Route: 058
     Dates: start: 20201021, end: 20201021
  9. HUMIRA [Suspect]
     Active Substance: ADALIMUMAB
     Indication: PSORIATIC ARTHROPATHY
     Route: 058
     Dates: start: 20201111, end: 20201111
  10. CYMBALTA [Concomitant]
     Active Substance: DULOXETINE HYDROCHLORIDE
     Route: 065

REACTIONS (36)
  - Anxiety [Unknown]
  - Neck pain [Not Recovered/Not Resolved]
  - Back pain [Unknown]
  - Urticaria [Not Recovered/Not Resolved]
  - Chills [Not Recovered/Not Resolved]
  - Joint fluid drainage [Unknown]
  - Intervertebral disc degeneration [Unknown]
  - Musculoskeletal stiffness [Not Recovered/Not Resolved]
  - Arthralgia [Not Recovered/Not Resolved]
  - Joint swelling [Recovered/Resolved]
  - Migraine [Not Recovered/Not Resolved]
  - Muscle spasms [Unknown]
  - Injection site bruising [Unknown]
  - Depression [Unknown]
  - Fatigue [Recovered/Resolved]
  - Meniscus injury [Unknown]
  - Coccydynia [Not Recovered/Not Resolved]
  - Road traffic accident [Unknown]
  - Impaired self-care [Unknown]
  - Increased tendency to bruise [Unknown]
  - Discomfort [Unknown]
  - Loss of personal independence in daily activities [Recovered/Resolved]
  - Poor quality sleep [Recovered/Resolved]
  - Stress fracture [Unknown]
  - Peripheral swelling [Recovered/Resolved]
  - Hallucination [Unknown]
  - Bursitis [Unknown]
  - Post-traumatic neck syndrome [Unknown]
  - Swelling [Unknown]
  - Arthropathy [Unknown]
  - Pain [Recovered/Resolved]
  - Joint stiffness [Recovered/Resolved]
  - Mobility decreased [Not Recovered/Not Resolved]
  - Off label use [Unknown]
  - Hyperhidrosis [Not Recovered/Not Resolved]
  - Headache [Not Recovered/Not Resolved]

NARRATIVE: CASE EVENT DATE: 2020
